FAERS Safety Report 16234414 (Version 1)
Quarter: 2019Q2

REPORT INFORMATION
  Report Type: Spontaneous
  Country: FR (occurrence: FR)
  Receive Date: 20190424
  Receipt Date: 20190424
  Transmission Date: 20190711
  Serious: Yes (Hospitalization)
  Sender: FDA-Public Use
  Company Number: FR-MYLANLABS-2019M1037051

PATIENT
  Age: 62 Year
  Sex: Male
  Weight: 103.2 kg

DRUGS (8)
  1. ETOPOPHOS [Suspect]
     Active Substance: ETOPOSIDE PHOSPHATE
     Indication: SMALL CELL LUNG CANCER
     Dosage: 200 MILLIGRAM, QD
     Route: 042
     Dates: start: 20181024, end: 20181026
  2. NOVORAPID [Concomitant]
     Active Substance: INSULIN ASPART
     Dosage: UNK
  3. TOUJEO [Concomitant]
     Active Substance: INSULIN GLARGINE
     Dates: start: 20181009
  4. CARBOPLATIN. [Suspect]
     Active Substance: CARBOPLATIN
     Indication: SMALL CELL LUNG CANCER
     Dosage: 800 MILLIGRAM, CYCLICAL
     Route: 042
     Dates: start: 20181024, end: 20181024
  5. ATENOLOL ARROW [Concomitant]
     Active Substance: ATENOLOL
  6. SOLUPRED                           /00016217/ [Concomitant]
     Active Substance: PREDNISOLONE SODIUM METAZOATE
     Route: 048
     Dates: start: 20180907
  7. INNOHEP [Concomitant]
     Active Substance: TINZAPARIN SODIUM
     Dates: start: 20181016
  8. ALPRAZOLAM MYLAN [Concomitant]
     Active Substance: ALPRAZOLAM

REACTIONS (2)
  - Septic shock [Not Recovered/Not Resolved]
  - Bone marrow failure [Recovering/Resolving]

NARRATIVE: CASE EVENT DATE: 20181101
